FAERS Safety Report 15977917 (Version 1)
Quarter: 2019Q1

REPORT INFORMATION
  Report Type: Spontaneous
  Country: CH (occurrence: CH)
  Receive Date: 20190218
  Receipt Date: 20190218
  Transmission Date: 20190418
  Serious: Yes (Hospitalization, Other)
  Sender: FDA-Public Use
  Company Number: CH-ABBVIE-19K-151-2666948-00

PATIENT
  Age: 55 Year
  Sex: Male

DRUGS (5)
  1. CALCIMAGON [Concomitant]
     Active Substance: CALCIUM
     Indication: PRODUCT USED FOR UNKNOWN INDICATION
  2. VENCLYXTO [Suspect]
     Active Substance: VENETOCLAX
     Indication: CHRONIC LYMPHOCYTIC LEUKAEMIA
     Dosage: UP-TITRATION DOSE NOT AVAILABLE, 2ND LINE CHEMOTHERAPY WITH RITUXIMAB
     Route: 048
     Dates: start: 201805, end: 20190115
  3. SPIRICORT [Suspect]
     Active Substance: PREDNISOLONE
     Indication: POLYMYALGIA RHEUMATICA
     Dosage: TAPERED OFF
     Route: 048
     Dates: start: 20181221, end: 20190202
  4. BRUFEN [Concomitant]
     Active Substance: IBUPROFEN
     Indication: PRODUCT USED FOR UNKNOWN INDICATION
  5. ASPIRIN CARDIO [Concomitant]
     Active Substance: ASPIRIN
     Indication: PRODUCT USED FOR UNKNOWN INDICATION

REACTIONS (5)
  - Sinusitis aspergillus [Not Recovered/Not Resolved]
  - Pneumocystis jirovecii pneumonia [Unknown]
  - VIth nerve paresis [Not Recovered/Not Resolved]
  - Orbital apex syndrome [Not Recovered/Not Resolved]
  - Pneumonia moraxella [Unknown]

NARRATIVE: CASE EVENT DATE: 20190116
